FAERS Safety Report 25201435 (Version 1)
Quarter: 2025Q2

REPORT INFORMATION
  Report Type: Spontaneous
  Country: BR (occurrence: BR)
  Receive Date: 20250416
  Receipt Date: 20250416
  Transmission Date: 20250717
  Serious: Yes (Death, Other)
  Sender: GENMAB
  Company Number: BR-ABBVIE-6231877

PATIENT
  Sex: Female

DRUGS (1)
  1. EPCORITAMAB [Suspect]
     Active Substance: EPCORITAMAB
     Indication: Diffuse large B-cell lymphoma
     Route: 058
     Dates: start: 2024

REACTIONS (7)
  - Immune effector cell-associated neurotoxicity syndrome [Fatal]
  - Diffuse large B-cell lymphoma [Unknown]
  - Depressed level of consciousness [Unknown]
  - Sepsis [Unknown]
  - Hypoxia [Unknown]
  - Confusional state [Unknown]
  - Cytokine release syndrome [Unknown]
